FAERS Safety Report 8228428-2 (Version None)
Quarter: 2012Q1

REPORT INFORMATION
  Report Type: 
  Country: None (occurrence: None)
  Receive Date: 20120322
  Receipt Date: 20111219
  Transmission Date: 20120608
  Serious: No
  Sender: FDA-Public Use
  Company Number: US-BAUSCH-2011BL008953

PATIENT
  Age: 70 Year
  Sex: Female

DRUGS (4)
  1. THERA TEARS [Concomitant]
     Route: 047
     Dates: start: 20111211
  2. DUREZOL [Concomitant]
     Route: 047
     Dates: start: 20111211
  3. DICLOFENAC SODIUM [Concomitant]
     Indication: INFLAMMATION
     Route: 047
     Dates: start: 20111211
  4. BESIVANCE [Suspect]
     Indication: CATARACT OPERATION
     Route: 047
     Dates: start: 20111211, end: 20111219

REACTIONS (2)
  - EYE PAIN [None]
  - EYE IRRITATION [None]
